FAERS Safety Report 9496275 (Version 2)
Quarter: 2013Q4

REPORT INFORMATION
  Report Type: Spontaneous
  Country: GB (occurrence: None)
  Receive Date: 20130829
  Receipt Date: 20131211
  Transmission Date: 20140711
  Serious: Yes (Death)
  Sender: FDA-Public Use
  Company Number: UTC-037073

PATIENT
  Age: 40 Year
  Sex: Female

DRUGS (2)
  1. REMODULIN (INJECTION FOR INFUSION) (TREPROSTINIL SODIUM) [Suspect]
     Indication: PULMONARY ARTERIAL HYPERTENSION
     Dosage: 0.16 UG/KG, 1 IN 1 MIN
     Route: 058
     Dates: start: 2000
  2. REMODULIN (INJECTION FOR INFUSION) (TREPROSTINIL SODIUM) [Suspect]
     Indication: PULMONARY ARTERIAL HYPERTENSION
     Dosage: 0.16 UG/KG, 1 IN 1 MIN
     Route: 058
     Dates: start: 2000

REACTIONS (4)
  - Death [None]
  - Pulmonary hypertension [None]
  - Right ventricular failure [None]
  - Disease progression [None]
